FAERS Safety Report 6242383-6 (Version None)
Quarter: 2009Q2

REPORT INFORMATION
  Report Type: 
  Country: None (occurrence: None)
  Receive Date: 20090624
  Receipt Date: 20090616
  Transmission Date: 20091009
  Serious: Yes (Life-Threatening, Hospitalization)
  Sender: FDA-Public Use
  Company Number: US-JNJFOC-20090504068

PATIENT
  Age: 49 Year
  Sex: Female

DRUGS (3)
  1. INTELENCE [Suspect]
     Indication: HIV INFECTION
     Route: 048
  2. RALTEGRAVIR [Suspect]
     Indication: HIV INFECTION
  3. LOPINAVIR AND RITONAVIR [Concomitant]
     Indication: HIV INFECTION

REACTIONS (3)
  - HEPATIC ENCEPHALOPATHY [None]
  - HEPATITIS [None]
  - HYPERSENSITIVITY [None]
